FAERS Safety Report 10349240 (Version 5)
Quarter: 2015Q1

REPORT INFORMATION
  Report Type: Spontaneous
  Country: ES (occurrence: ES)
  Receive Date: 20140730
  Receipt Date: 20150211
  Transmission Date: 20150720
  Serious: Yes (Hospitalization, Other)
  Sender: FDA-Public Use
  Company Number: ES-BIOGENIDEC-2014BI070544

PATIENT
  Age: 46 Year
  Sex: Male

DRUGS (8)
  1. TYSABRI [Suspect]
     Active Substance: NATALIZUMAB
     Indication: MULTIPLE SCLEROSIS
     Route: 042
  2. OMEPRAZOLE. [Concomitant]
     Active Substance: OMEPRAZOLE
  3. TRANXILIUM [Concomitant]
     Active Substance: CLORAZEPATE DIPOTASSIUM
  4. CEMIDON [Concomitant]
     Active Substance: ISONIAZID
     Dates: end: 20140716
  5. DETRUSITOL [Concomitant]
     Active Substance: TOLTERODINE TARTRATE
  6. MOTILIUM [Concomitant]
     Active Substance: DOMPERIDONE
     Route: 048
  7. TYSABRI [Suspect]
     Active Substance: NATALIZUMAB
     Indication: MULTIPLE SCLEROSIS
     Route: 042
     Dates: start: 20140701
  8. TRYPTIZOL [Concomitant]
     Active Substance: AMITRIPTYLINE HYDROCHLORIDE

REACTIONS (5)
  - Hepatitis toxic [Unknown]
  - Jaundice [Unknown]
  - Asthenia [Unknown]
  - Hepatic steatosis [Unknown]
  - Anaemia of chronic disease [Unknown]

NARRATIVE: CASE EVENT DATE: 20140701
